FAERS Safety Report 22007581 (Version 3)
Quarter: 2023Q2

REPORT INFORMATION
  Report Type: Report from Study
  Country: US (occurrence: US)
  Receive Date: 20230218
  Receipt Date: 20230608
  Transmission Date: 20230721
  Serious: Yes (Other)
  Sender: FDA-Public Use
  Company Number: US-ABBVIE-4310524

PATIENT
  Age: 36 Year
  Sex: Female

DRUGS (1)
  1. HUMIRA [Suspect]
     Active Substance: ADALIMUMAB
     Indication: Hidradenitis
     Dosage: CITRATE FREE, STRENGTH 40 MG
     Route: 058
     Dates: start: 20220520

REACTIONS (13)
  - Carpal tunnel syndrome [Recovering/Resolving]
  - Injection site haemorrhage [Unknown]
  - Injection site pruritus [Unknown]
  - Musculoskeletal stiffness [Unknown]
  - Injection site mass [Recovering/Resolving]
  - Pain in extremity [Recovering/Resolving]
  - Hidradenitis [Unknown]
  - Rectal haemorrhage [Unknown]
  - Arthralgia [Unknown]
  - Limb operation [Unknown]
  - Surgical failure [Unknown]
  - Injection site pain [Recovering/Resolving]
  - Accident at work [Unknown]

NARRATIVE: CASE EVENT DATE: 20230108
